FAERS Safety Report 5547177-2 (Version None)
Quarter: 2007Q4

REPORT INFORMATION
  Report Type: 
  Country: None (occurrence: None)
  Receive Date: 20071211
  Receipt Date: 20071129
  Transmission Date: 20080405
  Serious: Yes (Other)
  Sender: FDA-Public Use
  Company Number: US-PFIZER INC-2007100920

PATIENT
  Age: 60 Year

DRUGS (1)
  1. LYRICA [Suspect]

REACTIONS (1)
  - PERONEAL NERVE PALSY [None]
